FAERS Safety Report 5234356-7 (Version None)
Quarter: 2007Q1

REPORT INFORMATION
  Report Type: 
  Country: None (occurrence: None)
  Receive Date: 20070207
  Receipt Date: 20070126
  Transmission Date: 20070707
  Serious: Yes (Hospitalization)
  Sender: FDA-Public Use
  Company Number: 2006US001718

PATIENT
  Age: 37 Year
  Sex: Male

DRUGS (4)
  1. PROGRAF [Suspect]
     Indication: PROPHYLAXIS AGAINST TRANSPLANT REJECTION
     Dosage: 3 MG,  BID, ORAL
     Route: 048
     Dates: start: 20041206
  2. MYCOPHENOLATE MOFETIL [Suspect]
     Indication: PROPHYLAXIS AGAINST TRANSPLANT REJECTION
     Dosage: 1 G, UID QD, ORAL
     Route: 048
     Dates: start: 20041206
  3. SOLU-MEDROL [Suspect]
     Indication: PROPHYLAXIS AGAINST TRANSPLANT REJECTION
     Dosage: 500 MG, UID QD, IV NOS
     Route: 042
     Dates: start: 20041225, end: 20041225
  4. THYROGLOBULIN [Suspect]
     Dosage: 100 MG 1 X PER 5 DAY, IV NOS
     Route: 042
     Dates: start: 20041206, end: 20041211

REACTIONS (2)
  - DIABETIC KETOACIDOSIS [None]
  - RESPIRATORY TRACT INFECTION [None]
